FAERS Safety Report 16652864 (Version 3)
Quarter: 2019Q3

REPORT INFORMATION
  Report Type: Spontaneous
  Country: BE (occurrence: BE)
  Receive Date: 20190731
  Receipt Date: 20190813
  Transmission Date: 20191004
  Serious: Yes (Hospitalization, Other)
  Sender: FDA-Public Use
  Company Number: BE-PFIZER INC-2019321503

PATIENT
  Sex: Female

DRUGS (2)
  1. LIDOCAINE HYDROCHLORIDE. [Suspect]
     Active Substance: LIDOCAINE HYDROCHLORIDE
     Indication: PERIARTHRITIS
     Dosage: 3 INTRABURSAL INFILTRATIONS
     Route: 014
     Dates: start: 2017
  2. DEPO-MEDROL [Suspect]
     Active Substance: METHYLPREDNISOLONE ACETATE
     Indication: PERIARTHRITIS
     Dosage: 3 INTRABURSAL INFILTRATIONS
     Route: 014
     Dates: start: 2017

REACTIONS (5)
  - Asthenia [Not Recovered/Not Resolved]
  - Embolia cutis medicamentosa [Not Recovered/Not Resolved]
  - Injection site pain [Not Recovered/Not Resolved]
  - Paraesthesia [Not Recovered/Not Resolved]
  - Neuralgia [Not Recovered/Not Resolved]
